FAERS Safety Report 9185196 (Version 2)
Quarter: 2013Q2

REPORT INFORMATION
  Report Type: Spontaneous
  Country: US (occurrence: US)
  Receive Date: 20130325
  Receipt Date: 20130611
  Transmission Date: 20140414
  Serious: Yes (Death)
  Sender: FDA-Public Use
  Company Number: US-GILEAD-2013-0072180

PATIENT
  Sex: Male

DRUGS (6)
  1. LETAIRIS [Suspect]
     Indication: PULMONARY HYPERTENSION
     Dosage: 10 MG, QD
     Route: 048
     Dates: start: 20130115
  2. LETAIRIS [Suspect]
     Dates: start: 20120517
  3. KLOR-CON [Concomitant]
  4. LASIX                              /00032601/ [Concomitant]
  5. PROAIR                             /00139502/ [Concomitant]
  6. ADCIRCA [Concomitant]

REACTIONS (1)
  - Respiratory failure [Fatal]
